FAERS Safety Report 19997504 (Version 7)
Quarter: 2022Q4

REPORT INFORMATION
  Report Type: Report from Study
  Country: KR (occurrence: KR)
  Receive Date: 20211026
  Receipt Date: 20221026
  Transmission Date: 20230113
  Serious: Yes (Other)
  Sender: FDA-Public Use
  Company Number: KR-002147023-NVSC2021KR236052

PATIENT

DRUGS (84)
  1. RUXOLITINIB [Suspect]
     Active Substance: RUXOLITINIB
     Indication: Myelofibrosis
     Dosage: 20 MG, BID
     Route: 048
     Dates: start: 20210702, end: 20210801
  2. RUXOLITINIB [Suspect]
     Active Substance: RUXOLITINIB
     Dosage: 5 MG, BID
     Route: 048
     Dates: start: 20210802, end: 20211010
  3. CARVEDILOL [Concomitant]
     Active Substance: CARVEDILOL
     Indication: Hypertension
     Dosage: 50 MG, QD
     Route: 048
     Dates: start: 20210702, end: 20211007
  4. DIGOXIN [Concomitant]
     Active Substance: DIGOXIN
     Indication: Atrial flutter
     Dosage: 0.125 MG, QD
     Route: 048
     Dates: start: 20210627, end: 20210705
  5. CORDARONE [Concomitant]
     Active Substance: AMIODARONE HYDROCHLORIDE
     Indication: Atrial flutter
     Dosage: 400 MG, QD
     Route: 048
     Dates: start: 20210630, end: 20210705
  6. LASIX [Concomitant]
     Active Substance: FUROSEMIDE
     Indication: Prophylaxis
     Dosage: 40 MG, QD
     Route: 048
     Dates: start: 20210624
  7. LASIX [Concomitant]
     Active Substance: FUROSEMIDE
     Dosage: 60 MG, QD
     Route: 048
     Dates: start: 20210927, end: 20210927
  8. LASIX [Concomitant]
     Active Substance: FUROSEMIDE
     Dosage: 20 MG, QD
     Route: 042
     Dates: start: 20211006, end: 20211006
  9. LASIX [Concomitant]
     Active Substance: FUROSEMIDE
     Dosage: 60 MG, QD
     Route: 042
     Dates: start: 20211007, end: 20211007
  10. LASIX [Concomitant]
     Active Substance: FUROSEMIDE
     Dosage: 160 MG, QD
     Route: 042
     Dates: start: 20211008, end: 20211008
  11. LASIX [Concomitant]
     Active Substance: FUROSEMIDE
     Dosage: 200 MG, QD
     Route: 042
     Dates: start: 20211009, end: 20211009
  12. LIPITOR [Concomitant]
     Active Substance: ATORVASTATIN CALCIUM
     Indication: Hyperlipidaemia
     Dosage: 10 MG, QD
     Route: 048
     Dates: start: 20210622
  13. LIPITOR [Concomitant]
     Active Substance: ATORVASTATIN CALCIUM
     Dosage: 10 MG, QD
     Route: 048
     Dates: start: 20210702, end: 20210705
  14. MOSAPRIDE CITRATE [Concomitant]
     Active Substance: MOSAPRIDE CITRATE
     Indication: Prophylaxis
     Dosage: 15 MG, QD
     Route: 048
     Dates: start: 20210624
  15. MOSAPRIDE CITRATE [Concomitant]
     Active Substance: MOSAPRIDE CITRATE
     Dosage: 15 MG, QD
     Route: 048
     Dates: start: 20210702, end: 20211006
  16. MAGNESIUM OXIDE [Concomitant]
     Active Substance: MAGNESIUM OXIDE
     Indication: Prophylaxis
     Dosage: 500 MG, QD
     Route: 048
     Dates: start: 20210624
  17. MAGNESIUM OXIDE [Concomitant]
     Active Substance: MAGNESIUM OXIDE
     Dosage: 500 MG, QD
     Route: 048
     Dates: start: 20210702, end: 20210705
  18. ELIQUIS [Concomitant]
     Active Substance: APIXABAN
     Indication: Prophylaxis
     Dosage: 5 MG, QD
     Route: 048
     Dates: start: 20210702, end: 20210926
  19. LACTULOSE [Concomitant]
     Active Substance: LACTULOSE
     Indication: Prophylaxis
     Dosage: 30 ML, QD
     Route: 048
     Dates: start: 20210702, end: 20210702
  20. BANAN [Concomitant]
     Active Substance: CEFPODOXIME PROXETIL
     Indication: Prophylaxis
     Dosage: 400 MG, QD
     Route: 048
     Dates: start: 20210701
  21. BANAN [Concomitant]
     Active Substance: CEFPODOXIME PROXETIL
     Dosage: 400 MG, QD
     Route: 048
     Dates: start: 20210702, end: 20210705
  22. COUGH SYRUP [Concomitant]
     Active Substance: DEXTROMETHORPHAN HYDROBROMIDE\GUAIFENESIN
     Indication: Prophylaxis
     Dosage: 60 ML, QD
     Route: 048
     Dates: start: 20210630, end: 20210702
  23. FEBUXOSTAT [Concomitant]
     Active Substance: FEBUXOSTAT
     Indication: Prophylaxis
     Dosage: 40 MG, QD
     Route: 065
     Dates: start: 20210624
  24. FEBUXOSTAT [Concomitant]
     Active Substance: FEBUXOSTAT
     Dosage: 40 MG, QD
     Route: 048
     Dates: start: 20210702, end: 20211007
  25. TRAMADOL HYDROCHLORIDE [Concomitant]
     Active Substance: TRAMADOL HYDROCHLORIDE
     Indication: Myelofibrosis
     Dosage: 50 MG, QD
     Route: 042
     Dates: start: 20210702, end: 20210705
  26. TRAMADOL HYDROCHLORIDE [Concomitant]
     Active Substance: TRAMADOL HYDROCHLORIDE
     Dosage: 50 MG, QD
     Route: 042
     Dates: start: 20210926, end: 20211005
  27. NORZYME [Concomitant]
     Indication: Prophylaxis
     Dosage: 3 DOSAGE FORM, QD (3CAP/DAY)
     Route: 048
     Dates: start: 20210704, end: 20210704
  28. POLYETHYLENE GLYCOL 4000 [Concomitant]
     Active Substance: POLYETHYLENE GLYCOL 4000
     Indication: Prophylaxis
     Dosage: 10 G, QD
     Route: 048
     Dates: start: 20210704, end: 20210704
  29. PERINDOPRIL ARGININE [Concomitant]
     Active Substance: PERINDOPRIL ARGININE
     Indication: Hypertension
     Dosage: 1.25 MG, QD
     Route: 048
     Dates: start: 20210704, end: 20210704
  30. KASUWELL [Concomitant]
     Indication: Prophylaxis
     Dosage: 10 G, QD
     Route: 048
     Dates: start: 20210705, end: 20210718
  31. TASNA [Concomitant]
     Indication: Prophylaxis
     Dosage: 1 G, QD
     Route: 048
     Dates: start: 20210705, end: 20210705
  32. DIQUAFOSOL TETRASODIUM [Concomitant]
     Active Substance: DIQUAFOSOL TETRASODIUM
     Indication: Prophylaxis
     Dosage: 5 ML, QD (OPH SOLUTION)
     Route: 061
     Dates: start: 20210729, end: 20210909
  33. NEW HYALUNI [Concomitant]
     Indication: Prophylaxis
     Dosage: 0.45 ML, QD
     Route: 061
     Dates: start: 20210729, end: 20211010
  34. TROPICAMIDE [Concomitant]
     Active Substance: TROPICAMIDE
     Indication: Prophylaxis
     Dosage: 0.8 ML, QD
     Route: 061
     Dates: start: 20210729, end: 20210729
  35. ZALTOPROFEN [Concomitant]
     Active Substance: ZALTOPROFEN
     Indication: Myelofibrosis
     Dosage: 240 MG, QD
     Route: 048
     Dates: start: 20210809, end: 20210818
  36. ZALTOPROFEN [Concomitant]
     Active Substance: ZALTOPROFEN
     Indication: Prophylaxis
  37. PHAZYME COMPLEX [Concomitant]
     Indication: Prophylaxis
     Dosage: 3 DOSAGE FORM, QD (COMPLEX TWO LAYER TAB)
     Route: 048
     Dates: start: 20210809, end: 20210813
  38. CEFROXADINE [Concomitant]
     Active Substance: CEFROXADINE
     Indication: Myelofibrosis
     Dosage: 750 MG, QD
     Route: 048
     Dates: start: 20210809, end: 20210813
  39. CEFROXADINE [Concomitant]
     Active Substance: CEFROXADINE
     Indication: Prophylaxis
  40. NICARDIPINE HYDROCHLORIDE [Concomitant]
     Active Substance: NICARDIPINE HYDROCHLORIDE
     Indication: Hypertension
     Dosage: 2 MG, QD
     Route: 042
     Dates: start: 20210816, end: 20210816
  41. NICARDIPINE HYDROCHLORIDE [Concomitant]
     Active Substance: NICARDIPINE HYDROCHLORIDE
     Dosage: 2 MG, QD
     Route: 042
     Dates: start: 20210830, end: 20210830
  42. LEFEXIN [Concomitant]
     Indication: Prophylaxis
     Dosage: 300 MG, QD
     Route: 048
     Dates: start: 20210913, end: 20210927
  43. NEWRABELL [Concomitant]
     Indication: Myelofibrosis
     Dosage: 10 MG, QD
     Route: 048
     Dates: start: 20210913, end: 20210927
  44. NEWRABELL [Concomitant]
     Indication: Prophylaxis
  45. ACETYLCYSTEINE [Concomitant]
     Active Substance: ACETYLCYSTEINE
     Indication: Prophylaxis
     Dosage: 1 G, QD
     Route: 042
     Dates: start: 20210913, end: 20210913
  46. CODEINE [Concomitant]
     Active Substance: CODEINE
     Indication: Myelofibrosis
     Dosage: 60 MG, QD
     Route: 048
     Dates: start: 20210924, end: 20210929
  47. CODEINE [Concomitant]
     Active Substance: CODEINE
     Indication: Prophylaxis
  48. CEFTRIAXONE [Concomitant]
     Active Substance: CEFTRIAXONE
     Indication: Prophylaxis
     Dosage: 4 MG, QD
     Route: 042
     Dates: start: 20210924, end: 20210926
  49. ULTRACET [Concomitant]
     Active Substance: ACETAMINOPHEN\TRAMADOL HYDROCHLORIDE
     Indication: Myelofibrosis
     Dosage: UNK (1300/150MG/DAY)
     Route: 048
     Dates: start: 20210925, end: 20211001
  50. ULTRACET [Concomitant]
     Active Substance: ACETAMINOPHEN\TRAMADOL HYDROCHLORIDE
     Indication: Prophylaxis
     Dosage: UNK (650/75MG/DAY)
     Route: 048
     Dates: start: 20211002, end: 20211002
  51. ULTRACET [Concomitant]
     Active Substance: ACETAMINOPHEN\TRAMADOL HYDROCHLORIDE
     Dosage: UNK (650/75MG/DAY)
     Route: 048
     Dates: start: 20211006, end: 20211006
  52. EPEROSIN [Concomitant]
     Indication: Myelofibrosis
     Dosage: 150 MG, QD
     Route: 048
     Dates: start: 20210928, end: 20211006
  53. EPEROSIN [Concomitant]
     Indication: Prophylaxis
  54. MAXIPIME [Concomitant]
     Active Substance: CEFEPIME HYDROCHLORIDE
     Indication: Myelofibrosis
     Dosage: 6 G, QD
     Route: 042
     Dates: start: 20210928, end: 20210929
  55. MAXIPIME [Concomitant]
     Active Substance: CEFEPIME HYDROCHLORIDE
     Indication: Prophylaxis
     Dosage: 4 G, QD
     Route: 042
     Dates: start: 20210930, end: 20211006
  56. MAXIPIME [Concomitant]
     Active Substance: CEFEPIME HYDROCHLORIDE
     Dosage: 2 G, QD
     Route: 042
     Dates: start: 20211008, end: 20211009
  57. NEXIUM I.V. [Concomitant]
     Active Substance: ESOMEPRAZOLE SODIUM
     Indication: Myelofibrosis
     Dosage: 40 MG, QD
     Route: 042
     Dates: start: 20211001, end: 20211001
  58. NEXIUM I.V. [Concomitant]
     Active Substance: ESOMEPRAZOLE SODIUM
     Indication: Prophylaxis
  59. MACPERAN [METOCLOPRAMIDE HYDROCHLORIDE] [Concomitant]
     Indication: Prophylaxis
     Dosage: 10 MG, QD
     Route: 042
     Dates: start: 20211001, end: 20211001
  60. PETHIDINE [PETHIDINE HYDROCHLORIDE] [Concomitant]
     Indication: Myelofibrosis
     Dosage: 25 MG, QD
     Route: 042
     Dates: start: 20211001, end: 20211001
  61. CLOTRIMAZOLE [Concomitant]
     Active Substance: CLOTRIMAZOLE
     Indication: Myelofibrosis
     Dosage: 30 G, QD (POWDER)
     Route: 061
     Dates: start: 20211004, end: 20211004
  62. CLOTRIMAZOLE [Concomitant]
     Active Substance: CLOTRIMAZOLE
     Indication: Prophylaxis
  63. ORAMEDY [Concomitant]
     Active Substance: TRIAMCINOLONE ACETONIDE
     Indication: Myelofibrosis
     Dosage: 10 G, QD
     Route: 061
     Dates: start: 20211004, end: 20211004
  64. ORAMEDY [Concomitant]
     Active Substance: TRIAMCINOLONE ACETONIDE
     Indication: Prophylaxis
  65. MEGESTROL [MEGESTROL ACETATE] [Concomitant]
     Indication: Myelofibrosis
     Dosage: 5 ML, QD
     Route: 048
     Dates: start: 20211004, end: 20211006
  66. MEGESTROL [MEGESTROL ACETATE] [Concomitant]
     Indication: Prophylaxis
  67. .ALPHA.-TOCOPHEROL ACETATE\ALLANTOIN\LIDOCAINE\PREDNISOLONE [Concomitant]
     Active Substance: .ALPHA.-TOCOPHEROL ACETATE\ALLANTOIN\LIDOCAINE\PREDNISOLONE
     Indication: Prophylaxis
     Dosage: 2 G, QD
     Route: 061
     Dates: start: 20211005, end: 20211005
  68. MOBINUL [Concomitant]
     Indication: Myelofibrosis
     Dosage: 0.6 MG, QD
     Route: 042
     Dates: start: 20211006, end: 20211006
  69. MOBINUL [Concomitant]
     Indication: Prophylaxis
  70. FENTANYL CITRATE [Concomitant]
     Active Substance: FENTANYL CITRATE
     Indication: Myelofibrosis
     Dosage: 0.1 MG, QD
     Route: 042
     Dates: start: 20211005, end: 20211005
  71. FENTANYL CITRATE [Concomitant]
     Active Substance: FENTANYL CITRATE
     Indication: Prophylaxis
  72. KANITRON [Concomitant]
     Indication: Prophylaxis
     Dosage: 2 MG, QD
     Route: 042
     Dates: start: 20211006, end: 20211008
  73. MUCOSTEN [Concomitant]
     Indication: Prophylaxis
     Dosage: 1.8 G, QD
     Route: 042
     Dates: start: 20211006, end: 20211008
  74. LUZENIL [Concomitant]
     Indication: Myelofibrosis
     Dosage: 0.9 MG, QD
     Route: 042
     Dates: start: 20211006, end: 20211006
  75. LUZENIL [Concomitant]
     Indication: Prophylaxis
  76. HEPARIN [Concomitant]
     Active Substance: HEPARIN SODIUM
     Indication: Myelofibrosis
     Dosage: 2000 IU, QD
     Route: 042
     Dates: start: 20211006, end: 20211006
  77. HEPARIN [Concomitant]
     Active Substance: HEPARIN SODIUM
     Indication: Prophylaxis
  78. PYRINOL [PYRIDOSTIGMINE BROMIDE] [Concomitant]
     Indication: Myelofibrosis
     Dosage: 15 MG, QD
     Route: 042
     Dates: start: 20211006, end: 20211006
  79. PYRINOL [PYRIDOSTIGMINE BROMIDE] [Concomitant]
     Indication: Prophylaxis
  80. RAMOSETRON HYDROCHLORIDE [Concomitant]
     Active Substance: RAMOSETRON HYDROCHLORIDE
     Indication: Prophylaxis
     Dosage: 0.6 MG, QD
     Route: 042
     Dates: start: 20211006, end: 20211006
  81. REMIVA [Concomitant]
     Indication: Biopsy pleura
     Dosage: 2 MG, QD
     Route: 042
     Dates: start: 20211006, end: 20211006
  82. SODIUM BICARBONATE [Concomitant]
     Active Substance: SODIUM BICARBONATE
     Indication: Myelofibrosis
     Dosage: 240 ML, QD (BIVON)
     Route: 042
     Dates: start: 20211008, end: 20211008
  83. SODIUM BICARBONATE [Concomitant]
     Active Substance: SODIUM BICARBONATE
     Indication: Prophylaxis
     Dosage: 40 ML, QD (BIVON)
     Route: 042
     Dates: start: 20211009, end: 20211009
  84. PROPACETAMOL HYDROCHLORIDE [Concomitant]
     Active Substance: PROPACETAMOL HYDROCHLORIDE
     Indication: Myelofibrosis
     Dosage: 1 G, QD
     Route: 042
     Dates: start: 20211005, end: 20211006

REACTIONS (1)
  - Pancytopenia [Recovered/Resolved]

NARRATIVE: CASE EVENT DATE: 20210802
